FAERS Safety Report 20277852 (Version 3)
Quarter: 2022Q4

REPORT INFORMATION
  Report Type: Spontaneous
  Country: US (occurrence: US)
  Receive Date: 20220103
  Receipt Date: 20221012
  Transmission Date: 20230113
  Serious: Yes (Other)
  Sender: FDA-Public Use
  Company Number: US-SA-SAC20211230000437

PATIENT
  Age: 50 Year
  Sex: Female

DRUGS (1)
  1. ZANTAC [Suspect]
     Active Substance: RANITIDINE HYDROCHLORIDE
     Indication: Dyspepsia
     Dosage: 150 MG, QD
     Dates: start: 1995, end: 2017

REACTIONS (3)
  - Lung neoplasm malignant [Unknown]
  - Breast cancer female [Unknown]
  - Ovarian cancer stage I [Unknown]

NARRATIVE: CASE EVENT DATE: 20031018
